FAERS Safety Report 12400101 (Version 12)
Quarter: 2019Q1

REPORT INFORMATION
  Report Type: Spontaneous
  Country: US (occurrence: US)
  Receive Date: 20160524
  Receipt Date: 20190222
  Transmission Date: 20190417
  Serious: Yes (Death, Hospitalization)
  Sender: FDA-Public Use
  Company Number: US-ACTELION-A-US2016-136692

PATIENT
  Age: 67 Year
  Sex: Female

DRUGS (3)
  1. ELIQUIS [Suspect]
     Active Substance: APIXABAN
     Indication: PRODUCT USED FOR UNKNOWN INDICATION
     Dosage: UNK
     Route: 065
     Dates: start: 20150824
  2. ADCIRCA [Concomitant]
     Active Substance: TADALAFIL
  3. OPSUMIT [Suspect]
     Active Substance: MACITENTAN
     Indication: PULMONARY ARTERIAL HYPERTENSION
     Dosage: 10 MG, QD
     Route: 048
     Dates: start: 20151112, end: 20170223

REACTIONS (15)
  - Abdominal pain [Fatal]
  - Condition aggravated [Fatal]
  - Oxygen saturation decreased [Recovered/Resolved]
  - Pneumonia [Unknown]
  - Cardiac failure congestive [Recovered/Resolved]
  - Peripheral swelling [Recovered/Resolved]
  - Dyspnoea [Recovered/Resolved]
  - Rectal haemorrhage [Recovered/Resolved]
  - Oedema [Unknown]
  - Sepsis [Fatal]
  - Pleural effusion [Unknown]
  - Lactic acidosis [Fatal]
  - Small intestinal obstruction [Fatal]
  - Intestinal obstruction [Unknown]
  - Pericardial effusion [Unknown]

NARRATIVE: CASE EVENT DATE: 20160517
